FAERS Safety Report 15287150 (Version 7)
Quarter: 2020Q4

REPORT INFORMATION
  Report Type: Report from Study
  Country: US (occurrence: US)
  Receive Date: 20180817
  Receipt Date: 20201118
  Transmission Date: 20210113
  Serious: Yes (Death, Hospitalization, Other)
  Sender: FDA-Public Use
  Company Number: US-ROCHE-2143168

PATIENT
  Age: 65 Year
  Sex: Female
  Weight: 46.72 kg

DRUGS (12)
  1. BACLOFEN. [Concomitant]
     Active Substance: BACLOFEN
  2. LIPOSOMAL DOXORUBICIN [Suspect]
     Active Substance: DOXORUBICIN HYDROCHLORIDE
     Indication: OVARIAN EPITHELIAL CANCER
     Dosage: MOST RECENT DOSE (79 MG) ON 02/MAY/2018?LAST DOSE PRIOR TO THE SAE RECEIVED ON 29/MAY/2018
     Route: 042
     Dates: start: 20180502
  3. LIPOSOMAL DOXORUBICIN [Suspect]
     Active Substance: DOXORUBICIN HYDROCHLORIDE
     Dosage: CYCLE: 28 DAYS PLD 40 MG/M2 IV OVER 1 HOUR ON DAY 1?LAST DOSE ADMINISTERED ON 06/DEC/2018
     Route: 042
  4. POTASSIUM CHLORIDE. [Concomitant]
     Active Substance: POTASSIUM CHLORIDE
  5. ATEZOLIZUMAB. [Suspect]
     Active Substance: ATEZOLIZUMAB
     Indication: OVARIAN CANCER
     Dosage: LAST DOSE PRIOR TO THE SAE RECEIVED ON 29/MAY/2018
     Route: 042
     Dates: start: 20180502
  6. ASPIRIN. [Concomitant]
     Active Substance: ASPIRIN
  7. OMEGA-3 FATTY ACIDS [Concomitant]
     Active Substance: OMEGA-3 FATTY ACIDS
  8. CLONAZEPAM. [Concomitant]
     Active Substance: CLONAZEPAM
  9. ATEZOLIZUMAB. [Suspect]
     Active Substance: ATEZOLIZUMAB
     Dosage: LAST DOSE PRIOR TO THE SAE RECEIVED ON 24/JUL/2018
     Route: 042
     Dates: start: 20180724
  10. BEVACIZUMAB. [Suspect]
     Active Substance: BEVACIZUMAB
     Indication: OVARIAN EPITHELIAL CANCER
     Dosage: MOST RECENT DOSE (842 MG) ON 15/MAY/2018?LAST DOSE PRIOR TO THE SAE RECEIVED ON 29/MAY/2018
     Route: 042
     Dates: start: 20180502
  11. TRAMADOL. [Concomitant]
     Active Substance: TRAMADOL
  12. ATEZOLIZUMAB. [Suspect]
     Active Substance: ATEZOLIZUMAB
     Dosage: LAST DOSE ADMINISTERED PRIOR TO SAE: 20/DEC/2018?CYCLE: 28 DAYS (MPDL3280A) 800 MG IV OVER 1 HOUR ON
     Route: 042

REACTIONS (6)
  - Abdominal pain [Recovered/Resolved]
  - Dehydration [Recovered/Resolved]
  - Cardiac arrest [Fatal]
  - Small intestinal obstruction [Fatal]
  - Small intestinal obstruction [Not Recovered/Not Resolved]
  - Constipation [Recovered/Resolved]

NARRATIVE: CASE EVENT DATE: 20180525
